FAERS Safety Report 5065968-1 (Version None)
Quarter: 2006Q3

REPORT INFORMATION
  Report Type: 
  Country: None (occurrence: None)
  Receive Date: 20060731
  Receipt Date: 20060725
  Transmission Date: 20061208
  Serious: Yes (Hospitalization)
  Sender: FDA-Public Use
  Company Number: AU-BOEHRINGER INGELHEIM PHARMACEUTICALS, INC.-2006-BP-08683YA

PATIENT
  Sex: Male
  Weight: 78 kg

DRUGS (1)
  1. TAMSULOSIN OCR [Suspect]
     Indication: ESSENTIAL HYPERTENSION
     Route: 048
     Dates: start: 20060419, end: 20060419

REACTIONS (2)
  - BRADYCARDIA [None]
  - HYPOTENSION [None]
